FAERS Safety Report 4625485-7 (Version None)
Quarter: 2005Q2

REPORT INFORMATION
  Report Type: 
  Country: None (occurrence: None)
  Receive Date: 20050401
  Receipt Date: 20050323
  Transmission Date: 20051028
  Serious: Yes (Death, Other)
  Sender: FDA-Public Use
  Company Number: US-JNJFOC-20041206261

PATIENT
  Sex: Female
  Weight: 83.46 kg

DRUGS (20)
  1. REMICADE [Suspect]
     Indication: RHEUMATOID ARTHRITIS
     Route: 042
  2. PRILOSEC [Concomitant]
  3. SULFASALAZINE [Concomitant]
  4. DARVOCET [Concomitant]
  5. DARVOCET [Concomitant]
  6. ARAVA [Concomitant]
  7. ENBREL [Concomitant]
  8. TRAZADONE [Concomitant]
  9. VIOXX [Concomitant]
  10. VICODIN [Concomitant]
  11. VICODIN [Concomitant]
  12. CLINORIL [Concomitant]
  13. PLAQUENIL [Concomitant]
  14. RIDURA [Concomitant]
  15. METHOTREXATE [Concomitant]
  16. BEXTRA [Concomitant]
  17. FOLATE [Concomitant]
  18. METHOTREXATE [Concomitant]
  19. NEXIUM [Concomitant]
  20. KENOLOG [Concomitant]

REACTIONS (2)
  - MYELOID LEUKAEMIA [None]
  - SEPSIS [None]
